FAERS Safety Report 4540604-9 (Version None)
Quarter: 2004Q4

REPORT INFORMATION
  Report Type: 
  Country: None (occurrence: None)
  Receive Date: 20041229
  Receipt Date: 20041222
  Transmission Date: 20050328
  Serious: Yes (Other)
  Sender: FDA-Public Use
  Company Number: PHNU2004DE04279

PATIENT
  Sex: Female

DRUGS (2)
  1. CLOZARIL [Suspect]
     Indication: SCHIZOPHRENIA
     Dosage: UNK, UNK
     Route: 048
     Dates: end: 20041210
  2. CIATYL-Z [Suspect]
     Dosage: UNK, UNK
     Dates: start: 20041208, end: 20041210

REACTIONS (1)
  - LYMPHOPENIA [None]
